FAERS Safety Report 5798818-6 (Version None)
Quarter: 2008Q3

REPORT INFORMATION
  Report Type: 
  Country: None (occurrence: None)
  Receive Date: 20080702
  Receipt Date: 20080623
  Transmission Date: 20090109
  Serious: Yes (Hospitalization)
  Sender: FDA-Public Use
  Company Number: TR-ABBOTT-08P-161-0459400-00

PATIENT
  Age: 3 Year
  Sex: Male

DRUGS (1)
  1. VALPROATE SODIUM [Suspect]
     Indication: CONVULSION

REACTIONS (2)
  - ECCHYMOSIS [None]
  - FACTOR VII DEFICIENCY [None]
